FAERS Safety Report 5607367-7 (Version None)
Quarter: 2008Q1

REPORT INFORMATION
  Report Type: 
  Country: None (occurrence: None)
  Receive Date: 20080130
  Receipt Date: 20080117
  Transmission Date: 20080703
  Serious: Yes (Hospitalization)
  Sender: FDA-Public Use
  Company Number: JP-ELI_LILLY_AND_COMPANY-JP200801005294

PATIENT
  Age: 49 Year
  Sex: Male

DRUGS (6)
  1. GEMCITABINE HCL [Suspect]
     Indication: LUNG ADENOCARCINOMA STAGE IV
     Dosage: UNK, OTHER
     Route: 042
     Dates: start: 20060308, end: 20060322
  2. VINORELBINE [Concomitant]
     Indication: LUNG ADENOCARCINOMA STAGE IV
     Dosage: UNK, OTHER
     Route: 042
     Dates: start: 20060308, end: 20060308
  3. DOPAMINE HYDROCHLORIDE [Concomitant]
     Indication: BLOOD PRESSURE DECREASED
     Dosage: UNK, UNKNOWN
     Route: 065
     Dates: start: 20060308
  4. DEXAMETHASONE [Concomitant]
     Indication: BLOOD PRESSURE DECREASED
     Dosage: 16 MG, UNKNOWN
     Route: 065
     Dates: start: 20060308
  5. PENTAZOCINE LACTATE [Concomitant]
     Indication: SEDATION
     Dosage: 15 MG, UNKNOWN
     Route: 065
     Dates: start: 20060308
  6. PENTAZOCINE LACTATE [Concomitant]
     Dosage: 15 MG, UNKNOWN
     Route: 065
     Dates: start: 20060327

REACTIONS (1)
  - ANAPHYLACTIC SHOCK [None]
